FAERS Safety Report 7516589-X (Version None)
Quarter: 2011Q2

REPORT INFORMATION
  Report Type: 
  Country: None (occurrence: None)
  Receive Date: 20110601
  Receipt Date: 20110520
  Transmission Date: 20111010
  Serious: Yes (Hospitalization)
  Sender: FDA-Public Use
  Company Number: IT-PFIZER INC-2008090995

PATIENT
  Age: 54 Year
  Sex: Female
  Weight: 68 kg

DRUGS (4)
  1. DOCETAXEL [Suspect]
     Indication: BREAST CANCER
     Dosage: 96 MG, CYCLIC: EVERY 3 WEEKS
     Route: 042
     Dates: start: 20080327, end: 20081027
  2. MAALOX [Concomitant]
     Route: 048
     Dates: start: 20080909, end: 20081027
  3. SUNITINIB MALATE [Suspect]
     Indication: BREAST CANCER
     Dosage: 25 MG, 1X/DAY
     Route: 048
     Dates: start: 20080328, end: 20081014
  4. RABEPRAZOLE SODIUM [Concomitant]
     Route: 048
     Dates: start: 20080930

REACTIONS (1)
  - INTESTINAL PERFORATION [None]
